FAERS Safety Report 17349091 (Version 1)
Quarter: 2020Q1

REPORT INFORMATION
  Report Type: Report from Study
  Country: US (occurrence: US)
  Receive Date: 20200129
  Receipt Date: 20200129
  Transmission Date: 20200409
  Serious: No
  Sender: FDA-Public Use
  Company Number: US-EXELIXIS-CABO-19025149

PATIENT
  Sex: Male

DRUGS (3)
  1. HUMALOG [Concomitant]
     Active Substance: INSULIN LISPRO
     Dosage: UNK
  2. CABOMETYX [Suspect]
     Active Substance: CABOZANTINIB S-MALATE
     Indication: RENAL CELL CARCINOMA
     Dosage: 40 MG (MONDAY THROUGH FRIDAY)
     Dates: start: 20191014
  3. CABOMETYX [Suspect]
     Active Substance: CABOZANTINIB S-MALATE
     Indication: METASTASES TO LUNG

REACTIONS (6)
  - Diarrhoea [Recovering/Resolving]
  - Fatigue [Unknown]
  - Gingival pain [Recovered/Resolved]
  - Asthenia [Unknown]
  - Nausea [Recovering/Resolving]
  - Chest pain [Unknown]
